FAERS Safety Report 12510883 (Version 1)
Quarter: 2016Q2

REPORT INFORMATION
  Report Type: Spontaneous
  Country: US (occurrence: US)
  Receive Date: 20160629
  Receipt Date: 20160629
  Transmission Date: 20160815
  Serious: No
  Sender: FDA-Public Use
  Company Number: US-BAXALTA-2016BLT004638

PATIENT
  Age: 81 Year
  Sex: Female
  Weight: 72.6 kg

DRUGS (1)
  1. GAMMAGARD LIQUID [Suspect]
     Active Substance: HUMAN IMMUNOGLOBULIN G
     Indication: IMMUNODEFICIENCY COMMON VARIABLE
     Dosage: 11 G, IN 5 SITES, EVERY 10 DY
     Route: 058
     Dates: start: 2011

REACTIONS (6)
  - Infusion site swelling [Recovering/Resolving]
  - Erythema [Unknown]
  - Rash [Recovering/Resolving]
  - Infusion site extravasation [Recovering/Resolving]
  - Infusion site urticaria [Recovering/Resolving]
  - Infusion site bruising [Recovering/Resolving]

NARRATIVE: CASE EVENT DATE: 201603
